FAERS Safety Report 12017341 (Version 1)
Quarter: 2016Q1

REPORT INFORMATION
  Report Type: Report from Study
  Country: US (occurrence: US)
  Receive Date: 20160205
  Receipt Date: 20160205
  Transmission Date: 20160526
  Serious: Yes (Other)
  Sender: FDA-Public Use
  Company Number: US-ABBVIE-15K-163-1455988-00

PATIENT
  Sex: Male

DRUGS (1)
  1. HUMIRA [Suspect]
     Active Substance: ADALIMUMAB
     Indication: CROHN^S DISEASE
     Route: 058
     Dates: start: 201210

REACTIONS (7)
  - Lung neoplasm malignant [Unknown]
  - Cough [Not Recovered/Not Resolved]
  - Blood test abnormal [Unknown]
  - Tuberculosis [Unknown]
  - Respiratory tract congestion [Not Recovered/Not Resolved]
  - Infection [Not Recovered/Not Resolved]
  - Nuclear magnetic resonance imaging thoracic abnormal [Unknown]
